FAERS Safety Report 15291648 (Version 1)
Quarter: 2018Q3

REPORT INFORMATION
  Report Type: Spontaneous
  Country: IT (occurrence: IT)
  Receive Date: 20180817
  Receipt Date: 20180817
  Transmission Date: 20181010
  Serious: Yes (Hospitalization)
  Sender: FDA-Public Use
  Company Number: IT-TEVA-2018-IT-941745

PATIENT
  Age: 37 Year
  Sex: Female

DRUGS (6)
  1. VENLAFAXINE [Suspect]
     Active Substance: VENLAFAXINE HYDROCHLORIDE
     Indication: DRUG ABUSE
     Dosage: 150 MG, UNK
     Route: 048
     Dates: start: 20140215, end: 20140215
  2. ABILIFY [Suspect]
     Active Substance: ARIPIPRAZOLE
     Indication: DRUG ABUSE
     Dosage: 15 MG, UNK
     Route: 048
     Dates: start: 20140215, end: 20140215
  3. LARGACTIL [Suspect]
     Active Substance: CHLORPROMAZINE
     Indication: DRUG ABUSE
     Dosage: 75 MG, UNK
     Route: 048
     Dates: start: 20140215, end: 20140215
  4. DEPAKIN [Suspect]
     Active Substance: VALPROATE SODIUM
     Indication: DRUG ABUSE
     Dosage: 1500 MG, UNK
     Route: 048
     Dates: start: 20140215, end: 20140215
  5. DELORAZEPAM [Suspect]
     Active Substance: DELORAZEPAM
     Indication: PRODUCT USED FOR UNKNOWN INDICATION
     Dosage: 1 MG, UNK
     Route: 048
     Dates: start: 20140215, end: 20140215
  6. EN [Suspect]
     Active Substance: DELORAZEPAM
     Indication: DRUG ABUSE
     Route: 048
     Dates: start: 20140215, end: 20140215

REACTIONS (5)
  - Joint injury [Unknown]
  - Drug abuse [Unknown]
  - Confusional state [Unknown]
  - Wound [Unknown]
  - Intentional self-injury [Unknown]

NARRATIVE: CASE EVENT DATE: 20140215
